FAERS Safety Report 9363085 (Version 1)
Quarter: 2013Q2

REPORT INFORMATION
  Report Type: Spontaneous
  Country: US (occurrence: US)
  Receive Date: 20130624
  Receipt Date: 20130624
  Transmission Date: 20140414
  Serious: No
  Sender: FDA-Public Use
  Company Number: US-PFIZER INC-2013187371

PATIENT
  Age: 75 Year
  Sex: Male
  Weight: 68.03 kg

DRUGS (3)
  1. LYRICA [Suspect]
     Indication: NERVE INJURY
     Dosage: 50 MG, 2X/DAY
     Dates: start: 201201
  2. BACLOFEN [Suspect]
     Indication: JOINT SWELLING
     Dosage: 10 MG, 2X/DAY
  3. BACLOFEN [Suspect]
     Indication: LOCAL SWELLING

REACTIONS (8)
  - Drug ineffective [Unknown]
  - Local swelling [Not Recovered/Not Resolved]
  - Joint swelling [Not Recovered/Not Resolved]
  - Joint stiffness [Unknown]
  - Erythema [Unknown]
  - Vibratory sense increased [Unknown]
  - Dry mouth [Unknown]
  - Eye irritation [Unknown]
